FAERS Safety Report 9725807 (Version 2)
Quarter: 2013Q4

REPORT INFORMATION
  Report Type: Spontaneous
  Country: ZA (occurrence: ZA)
  Receive Date: 20131203
  Receipt Date: 20131231
  Transmission Date: 20140711
  Serious: Yes (Other)
  Sender: FDA-Public Use
  Company Number: ZA-JNJFOC-20131117242

PATIENT
  Age: 36 Year
  Sex: Male

DRUGS (2)
  1. XEPLION [Suspect]
     Indication: SCHIZOPHRENIA
     Route: 030
     Dates: start: 2013
  2. XEPLION [Suspect]
     Indication: SCHIZOPHRENIA
     Route: 030
     Dates: start: 201312

REACTIONS (4)
  - General physical health deterioration [Unknown]
  - Paranoia [Unknown]
  - Anxiety [Unknown]
  - Drug ineffective [Unknown]
